FAERS Safety Report 7945441-0 (Version None)
Quarter: 2011Q4

REPORT INFORMATION
  Report Type: 
  Country: None (occurrence: None)
  Receive Date: 20111129
  Receipt Date: 20111117
  Transmission Date: 20120403
  Serious: Yes (Hospitalization, Other)
  Sender: FDA-Public Use
  Company Number: US-ELI_LILLY_AND_COMPANY-US201110004684

PATIENT
  Age: 54 Year
  Sex: Male

DRUGS (4)
  1. HUMALOG [Suspect]
     Dosage: 15 U, EACH EVENING
     Dates: start: 20010101
  2. LANTUS [Concomitant]
     Dosage: 35 U, EACH EVENING
  3. HUMALOG [Suspect]
     Dosage: 15 U, OTHER
     Dates: start: 20010101
  4. HUMALOG [Suspect]
     Indication: DIABETES MELLITUS
     Dosage: 20 U, EACH MORNING
     Dates: start: 20010101

REACTIONS (1)
  - BLOOD GLUCOSE INCREASED [None]
